FAERS Safety Report 11168940 (Version 1)
Quarter: 2015Q2

REPORT INFORMATION
  Report Type: Spontaneous
  Country: US (occurrence: US)
  Receive Date: 20150605
  Receipt Date: 20150605
  Transmission Date: 20150821
  Serious: Yes (Life-Threatening, Hospitalization, Other)
  Sender: FDA-Public Use
  Company Number: US-BAYER-2015-306541

PATIENT
  Age: 21 Year
  Sex: Female

DRUGS (1)
  1. MIRENA [Suspect]
     Active Substance: LEVONORGESTREL
     Dosage: 20 MCG/24HR, CONT
     Route: 015
     Dates: start: 20041123, end: 20060406

REACTIONS (10)
  - Uterine perforation [None]
  - Pelvic pain [None]
  - Device dislocation [None]
  - Genital haemorrhage [None]
  - Anhedonia [None]
  - Injury [None]
  - General physical health deterioration [None]
  - Pain [None]
  - Anxiety [None]
  - Emotional distress [None]

NARRATIVE: CASE EVENT DATE: 200603
